FAERS Safety Report 4662724-0 (Version None)
Quarter: 2005Q2

REPORT INFORMATION
  Report Type: 
  Country: None (occurrence: None)
  Receive Date: 20050512
  Receipt Date: 20050425
  Transmission Date: 20051028
  Serious: Yes (Hospitalization, Other)
  Sender: FDA-Public Use
  Company Number: US_0504116117

PATIENT
  Age: 58 Year
  Sex: Female

DRUGS (1)
  1. PERGOLIDE MESYLATE [Suspect]
     Indication: PARKINSON'S DISEASE

REACTIONS (5)
  - ANXIETY DISORDER [None]
  - AORTIC VALVE DISEASE [None]
  - CARDIAC FAILURE [None]
  - MITRAL VALVE DISEASE [None]
  - TRICUSPID VALVE DISEASE [None]
